FAERS Safety Report 23636040 (Version 2)
Quarter: 2024Q2

REPORT INFORMATION
  Report Type: Spontaneous
  Country: US (occurrence: US)
  Receive Date: 20240315
  Receipt Date: 20240417
  Transmission Date: 20240716
  Serious: Yes (Other)
  Sender: FDA-Public Use
  Company Number: US-PROCTER+GAMBLE-PH24002337

PATIENT
  Age: 70 Year
  Sex: Female
  Weight: 68.027 kg

DRUGS (8)
  1. DIETARY SUPPLEMENT [Suspect]
     Active Substance: DIETARY SUPPLEMENT
     Indication: Neuralgia
     Dosage: 1 /DAY, AS RECOMMENDED ON PRODUCT INSTRUCTION
     Route: 048
     Dates: start: 202202, end: 202312
  2. LYRICA [Concomitant]
     Active Substance: PREGABALIN
     Indication: Neuralgia
     Dosage: 75 MILLIGRAM, 2 /DAY
  3. COENZYME Q10 [Concomitant]
     Active Substance: DIETARY SUPPLEMENT\UBIDECARENONE
     Dosage: 1 DOSAGE FORM, 1 /DAY
  4. LIPITOR [Concomitant]
     Active Substance: ATORVASTATIN CALCIUM
     Dosage: 1 DOSAGE FORM, 1 /DAY
  5. VITAMIN A [Concomitant]
     Active Substance: VITAMIN A
  6. ADVIL [Concomitant]
     Active Substance: IBUPROFEN
     Dosage: UNK, 2 /DAY; OVER 2 YEARS
  7. ZETIA [Concomitant]
     Active Substance: EZETIMIBE
  8. PANTOPRAZOLE [Concomitant]
     Active Substance: PANTOPRAZOLE

REACTIONS (14)
  - Renal failure [Not Recovered/Not Resolved]
  - Glomerulonephritis membranous [Not Recovered/Not Resolved]
  - Joint swelling [Not Recovered/Not Resolved]
  - Peripheral swelling [Not Recovered/Not Resolved]
  - Fluid retention [Not Recovered/Not Resolved]
  - Oedema peripheral [Not Recovered/Not Resolved]
  - Hyperlipidaemia [Not Recovered/Not Resolved]
  - Protein urine present [Unknown]
  - Blood cholesterol increased [Unknown]
  - Blood albumin decreased [Unknown]
  - Urine protein/creatinine ratio increased [Unknown]
  - Nephrotic syndrome [Unknown]
  - Renal tubular atrophy [Unknown]
  - Kidney fibrosis [Unknown]

NARRATIVE: CASE EVENT DATE: 20231201
